FAERS Safety Report 25060285 (Version 1)
Quarter: 2025Q1

REPORT INFORMATION
  Report Type: Spontaneous
  Country: MY (occurrence: MY)
  Receive Date: 20250310
  Receipt Date: 20250310
  Transmission Date: 20250408
  Serious: Yes (Death, Hospitalization, Other)
  Sender: Steriscience PTE
  Company Number: MY-STERISCIENCE B.V.-2025-ST-000448

PATIENT
  Age: 52 Year
  Sex: Female

DRUGS (7)
  1. PIPERACILLIN SODIUM\TAZOBACTAM SODIUM [Suspect]
     Active Substance: PIPERACILLIN SODIUM\TAZOBACTAM SODIUM
     Indication: Septic shock
     Route: 065
  2. PIPERACILLIN SODIUM\TAZOBACTAM SODIUM [Suspect]
     Active Substance: PIPERACILLIN SODIUM\TAZOBACTAM SODIUM
     Indication: Klebsiella infection
  3. PIPERACILLIN SODIUM\TAZOBACTAM SODIUM [Suspect]
     Active Substance: PIPERACILLIN SODIUM\TAZOBACTAM SODIUM
     Indication: Pneumonia bacterial
  4. MEROPENEM [Suspect]
     Active Substance: MEROPENEM
     Indication: Septic shock
     Route: 065
  5. MEROPENEM [Suspect]
     Active Substance: MEROPENEM
     Indication: Klebsiella infection
  6. MEROPENEM [Suspect]
     Active Substance: MEROPENEM
     Indication: Pneumonia bacterial
  7. MEROPENEM [Suspect]
     Active Substance: MEROPENEM
     Indication: Antibiotic therapy

REACTIONS (3)
  - Multiple organ dysfunction syndrome [Fatal]
  - Disease progression [Fatal]
  - Drug ineffective [Fatal]
